FAERS Safety Report 15083638 (Version 3)
Quarter: 2018Q3

REPORT INFORMATION
  Report Type: Spontaneous
  Country: US (occurrence: US)
  Receive Date: 20180628
  Receipt Date: 20180817
  Transmission Date: 20181010
  Serious: Yes (Hospitalization)
  Sender: FDA-Public Use
  Company Number: US-JNJFOC-20180627136

PATIENT
  Age: 67 Year
  Sex: Male
  Weight: 110.22 kg

DRUGS (1)
  1. XARELTO [Suspect]
     Active Substance: RIVAROXABAN
     Indication: PRODUCT USED FOR UNKNOWN INDICATION
     Route: 048
     Dates: start: 20180607, end: 20180610

REACTIONS (2)
  - Pulmonary oedema [Recovering/Resolving]
  - Haemothorax [Recovering/Resolving]

NARRATIVE: CASE EVENT DATE: 201806
